FAERS Safety Report 5085938-7 (Version None)
Quarter: 2006Q3

REPORT INFORMATION
  Report Type: 
  Country: None (occurrence: None)
  Receive Date: 20060822
  Receipt Date: 20060815
  Transmission Date: 20061208
  Serious: Yes (Other)
  Sender: FDA-Public Use
  Company Number: CA-ABBOTT-06P-028-0340801-00

PATIENT
  Sex: Male

DRUGS (1)
  1. TERAZOSIN [Suspect]
     Indication: URINARY TRACT DISORDER

REACTIONS (1)
  - IRIDOCELE [None]
